FAERS Safety Report 6369929-1 (Version None)
Quarter: 2009Q3

REPORT INFORMATION
  Report Type: 
  Country: None (occurrence: None)
  Receive Date: 20090923
  Receipt Date: 20070307
  Transmission Date: 20100115
  Serious: No
  Sender: FDA-Public Use
  Company Number: US-ASTRAZENECA-2006UW10945

PATIENT
  Age: 16157 Day
  Sex: Male
  Weight: 178.3 kg

DRUGS (35)
  1. SEROQUEL [Suspect]
     Indication: MENTAL DISORDER
     Dosage: 50-100MG
     Route: 048
     Dates: start: 19990811
  2. SEROQUEL [Suspect]
     Indication: DEPRESSION
     Dosage: 50-100MG
     Route: 048
     Dates: start: 19990811
  3. SEROQUEL [Suspect]
     Indication: ANXIETY
     Dosage: 50-100MG
     Route: 048
     Dates: start: 19990811
  4. SEROQUEL [Suspect]
     Indication: SLEEP DISORDER
     Dosage: 50-100MG
     Route: 048
     Dates: start: 19990811
  5. SEROQUEL [Suspect]
     Indication: SCHIZOPHRENIA
     Dosage: 50-100MG
     Route: 048
     Dates: start: 19990811
  6. ZYPREXA [Suspect]
     Dosage: 5-30 MG
     Route: 048
     Dates: start: 19970101
  7. ZYPREXA [Suspect]
     Dosage: 5-30 MG
     Route: 065
  8. RISPERDAL [Concomitant]
     Route: 048
     Dates: start: 20050101
  9. ABILIFY [Concomitant]
     Dosage: 15-20 MG
     Route: 065
  10. CYMBALTA [Concomitant]
     Dosage: 30-60 MG
     Route: 048
  11. TOPROL-XL [Concomitant]
     Dosage: 50-100 MG
     Route: 065
  12. LIPITOR [Concomitant]
     Dosage: 10-25 MG
     Route: 065
  13. ALBUTEROL SPRAY [Concomitant]
     Route: 048
  14. NORVASC [Concomitant]
     Indication: HYPERTENSION
     Dosage: 5-10 MG
     Route: 065
  15. IMDUR [Concomitant]
     Dosage: 30-90 MG
     Route: 065
  16. PROZAC [Concomitant]
     Dosage: 20-60 MG
     Route: 065
  17. ASPIRIN [Concomitant]
     Dosage: 81-325 MG
     Route: 048
  18. FENOFIBRATE [Concomitant]
     Route: 065
  19. BUSPAR [Concomitant]
     Indication: ANXIETY
     Dosage: 5 MG QHS, 10 MG TWICE DAILY, 20 MG DAILY
     Route: 065
  20. MAVIK [Concomitant]
     Route: 065
  21. KLONOPIN [Concomitant]
     Dosage: 0.5-2 MG
     Route: 065
  22. ADVAIR HFA [Concomitant]
     Indication: ASTHMA
     Dosage: 250 MG, 500/50 PUFF BID, 250/50
     Route: 065
  23. WELLBUTRIN [Concomitant]
     Dosage: 150-300 MG
     Route: 048
  24. HYDROCHLOROTHIAZIDE [Concomitant]
     Route: 065
  25. AMBIEN [Concomitant]
     Indication: INSOMNIA
     Dosage: 5-10 MG
     Route: 048
  26. BUMEX [Concomitant]
     Indication: FLUID RETENTION
     Dosage: 1 MG
     Route: 065
  27. VALTREX [Concomitant]
     Indication: HERPES VIRUS INFECTION
     Dosage: 500 MG DAILY, 500 MG Q BID
     Route: 048
  28. NITROSTAT [Concomitant]
     Route: 060
  29. LISINOPRIL [Concomitant]
     Route: 065
  30. ZOCOR [Concomitant]
     Dosage: 20-40 MG, ONCE IN A DAY
     Route: 065
  31. METFORMIN HCL [Concomitant]
     Indication: DIABETES MELLITUS
     Dosage: 500-850 MG
     Route: 048
  32. BYETTA [Concomitant]
     Indication: DIABETES MELLITUS
     Route: 065
  33. GLIMEPIRIDE [Concomitant]
     Indication: DIABETES MELLITUS
     Dosage: 4 MG HALF TABLET BEFORE BREAKFAST
     Route: 048
  34. SERZONE [Concomitant]
     Indication: ANXIETY
     Dosage: 150-300 MG
     Route: 065
  35. SERZONE [Concomitant]
     Indication: DEPRESSION
     Dosage: 150-300 MG
     Route: 065

REACTIONS (3)
  - DIABETES MELLITUS [None]
  - DIABETES MELLITUS INADEQUATE CONTROL [None]
  - HYPERGLYCAEMIA [None]
